FAERS Safety Report 19788693 (Version 1)
Quarter: 2021Q3

REPORT INFORMATION
  Report Type: Spontaneous
  Country: NL (occurrence: NL)
  Receive Date: 20210904
  Receipt Date: 20210904
  Transmission Date: 20211014
  Serious: Yes (Other)
  Sender: FDA-Public Use
  Company Number: NL-AUROBINDO-AUR-APL-2021-037205

PATIENT
  Age: 55 Year

DRUGS (2)
  1. BUPIVACAINE 2.5MG/ML [Suspect]
     Active Substance: BUPIVACAINE
     Indication: OSTEOARTHRITIS
     Dosage: 1 DOSAGE FORM, 1 TOTAL (2DE INJECTIE 26?08?2016 )
     Route: 014
     Dates: start: 20160816
  2. KENACORT A [TRIAMCINOLONE ACETONIDE] [Suspect]
     Active Substance: TRIAMCINOLONE ACETONIDE
     Indication: OSTEOARTHRITIS
     Dosage: 1 DOSAGE FORM, 1 TOTAL (2DE INJECTIE 26?08?2016 )
     Route: 014
     Dates: start: 20160816

REACTIONS (3)
  - Joint swelling [Unknown]
  - Staphylococcal infection [Unknown]
  - Arthralgia [Unknown]

NARRATIVE: CASE EVENT DATE: 201608
